FAERS Safety Report 7360323-3 (Version None)
Quarter: 2011Q1

REPORT INFORMATION
  Report Type: 
  Country: None (occurrence: None)
  Receive Date: 20110318
  Receipt Date: 20101019
  Transmission Date: 20110831
  Serious: Yes (Hospitalization, Other)
  Sender: FDA-Public Use
  Company Number: US-BAYER-201015601NA

PATIENT
  Sex: Female
  Weight: 77.098 kg

DRUGS (25)
  1. ZESTRIL [Concomitant]
     Dosage: 2.5 MG, UNK
     Route: 048
     Dates: start: 20081221
  2. MYLANTA AR [Concomitant]
     Dosage: 30 CC
     Route: 048
     Dates: start: 20081221
  3. XANAX [Concomitant]
     Dosage: 0.25 MG
     Route: 048
     Dates: start: 20081221
  4. YASMIN [Suspect]
     Indication: PREMENSTRUAL SYNDROME
     Dosage: 1 DF, QD
     Dates: start: 20040101
  5. ATIVAN [Concomitant]
     Dosage: 1 MG, UNK
     Route: 042
     Dates: start: 20081221
  6. PRAVASTATIN [Concomitant]
     Dosage: 20 MG, UNK
     Route: 048
     Dates: start: 20081221
  7. LORTAB [Concomitant]
     Dosage: 5/50
     Route: 048
     Dates: start: 20081221
  8. VERSED [Concomitant]
     Dosage: 1 MG
     Route: 042
     Dates: start: 20081221
  9. NEXIUM [Concomitant]
     Dosage: 40 MG
     Route: 048
     Dates: start: 20081221
  10. YAZ [Suspect]
     Indication: PREMENSTRUAL SYNDROME
     Dosage: UNK
     Dates: start: 20080101, end: 20100101
  11. HEPARIN [Concomitant]
     Dosage: IV DRIP
     Route: 042
     Dates: start: 20081221
  12. HYDROCODONE [Concomitant]
  13. NITROGLYCERIN [Concomitant]
     Dosage: UNK
     Dates: start: 20081221, end: 20081221
  14. VITAMIN D [Concomitant]
     Indication: VITAMIN SUPPLEMENTATION
     Dosage: 1 DF, QD
  15. BENTYL [Concomitant]
  16. PRISTIQ [Concomitant]
     Indication: DEPRESSION
     Dosage: 50 MG, QD
  17. PLAVIX [Concomitant]
     Dosage: 600 MG, UNK
     Route: 048
     Dates: start: 20081221
  18. LISINOPRIL [Concomitant]
     Dosage: 2.5 MG, UNK
     Dates: start: 20081221
  19. ZOFRAN [Concomitant]
     Dosage: 4 MG, UNK
     Route: 042
     Dates: start: 20081221
  20. SENOKOT [Concomitant]
     Dosage: UNK
     Route: 048
     Dates: start: 20081221
  21. METFORMIN HCL [Concomitant]
     Indication: DIABETES MELLITUS
     Dosage: 500 MG
     Route: 048
  22. ZOCOR [Concomitant]
     Dosage: 40 GM
     Route: 048
     Dates: start: 20081221
  23. INTEGRILIN [Concomitant]
     Dosage: 2 MCG/ KG/ MIN
     Route: 042
     Dates: start: 20081221
  24. FENTANYL [Concomitant]
     Dosage: 100 ?G
     Route: 042
     Dates: start: 20081221
  25. COLACE [Concomitant]
     Dosage: 100 MG
     Route: 048
     Dates: start: 20081221

REACTIONS (16)
  - CHOLECYSTITIS ACUTE [None]
  - PANIC ATTACK [None]
  - GALLBLADDER DISORDER [None]
  - ARRHYTHMIA [None]
  - CHEST PAIN [None]
  - ANGINA UNSTABLE [None]
  - GASTROINTESTINAL DISORDER [None]
  - CARDIAC DISORDER [None]
  - CARDIAC VALVE DISEASE [None]
  - ANXIETY [None]
  - CORONARY ARTERY DISEASE [None]
  - MENTAL DISORDER [None]
  - CARDIAC FAILURE CONGESTIVE [None]
  - ABDOMINAL PAIN [None]
  - SINUS TACHYCARDIA [None]
  - DEPRESSED MOOD [None]
